FAERS Safety Report 9913542 (Version 1)
Quarter: 2014Q1

REPORT INFORMATION
  Report Type: Spontaneous
  Country: US (occurrence: None)
  Receive Date: 20140218
  Receipt Date: 20140218
  Transmission Date: 20141002
  Serious: Yes (Hospitalization)
  Sender: FDA-Public Use
  Company Number: None

PATIENT
  Age: 60 Year
  Sex: Female
  Weight: 123.8 kg

DRUGS (3)
  1. METHOTREXATE [Suspect]
  2. PROCARBAZINE [Suspect]
  3. RITUXIMAB [Suspect]

REACTIONS (7)
  - Dyspnoea [None]
  - Tachycardia [None]
  - Hypotension [None]
  - Asthenia [None]
  - Deep vein thrombosis [None]
  - Deep vein thrombosis [None]
  - Deep vein thrombosis [None]
